FAERS Safety Report 20529240 (Version 1)
Quarter: 2022Q1

REPORT INFORMATION
  Report Type: Spontaneous
  Country: US (occurrence: US)
  Receive Date: 20220228
  Receipt Date: 20220228
  Transmission Date: 20220424
  Serious: No
  Sender: FDA-Public Use
  Company Number: US-BRISTOL-MYERS SQUIBB COMPANY-BMS-2022-026887

PATIENT
  Age: 64 Year
  Sex: Female

DRUGS (4)
  1. ORENCIA [Suspect]
     Active Substance: ABATACEPT
     Indication: Juvenile psoriatic arthritis
     Dosage: 125 MG/ML, WEEKLY
     Route: 058
     Dates: start: 20201210
  2. ORENCIA [Suspect]
     Active Substance: ABATACEPT
     Indication: Juvenile psoriatic arthritis
     Dosage: 125 MG/ML, WEEKLY
     Route: 058
     Dates: start: 20201210
  3. ORENCIA [Suspect]
     Active Substance: ABATACEPT
     Indication: Rheumatoid arthritis
  4. ORENCIA [Suspect]
     Active Substance: ABATACEPT
     Indication: Rheumatoid arthritis

REACTIONS (1)
  - Drug ineffective [Unknown]
